FAERS Safety Report 13060865 (Version 2)
Quarter: 2017Q1

REPORT INFORMATION
  Report Type: Report from Study
  Country: None (occurrence: BR)
  Receive Date: 20161225
  Receipt Date: 20170104
  Transmission Date: 20170428
  Serious: Yes (Death, Other)
  Sender: FDA-Public Use
  Company Number: BR-ABBVIE-16K-020-1819708-00

PATIENT
  Age: 62 Year
  Sex: Female
  Weight: 80 kg

DRUGS (17)
  1. DIAMICRON [Concomitant]
     Active Substance: GLICLAZIDE
     Indication: DIABETES MELLITUS
     Route: 048
     Dates: start: 2015
  2. OMEPRAZOLE. [Concomitant]
     Active Substance: OMEPRAZOLE
     Indication: PROPHYLAXIS
  3. FORXIGA [Concomitant]
     Active Substance: DAPAGLIFLOZIN
     Indication: DIABETES MELLITUS
     Route: 048
     Dates: start: 20161130
  4. HUMIRA [Suspect]
     Active Substance: ADALIMUMAB
     Indication: PSORIATIC ARTHROPATHY
     Route: 058
     Dates: start: 20140701
  5. AMYTRIL [Concomitant]
     Active Substance: AMITRIPTYLINE HYDROCHLORIDE
     Indication: PSORIASIS
     Route: 048
     Dates: start: 2006
  6. DIAMICRON [Concomitant]
     Active Substance: GLICLAZIDE
     Route: 048
  7. PROPRANOLOL [Concomitant]
     Active Substance: PROPRANOLOL HYDROCHLORIDE
     Indication: BLOOD PRESSURE MANAGEMENT
     Route: 048
  8. OMEPRAZOLE. [Concomitant]
     Active Substance: OMEPRAZOLE
     Indication: GASTRITIS
     Route: 048
     Dates: start: 2013
  9. LOSARTAN. [Concomitant]
     Active Substance: LOSARTAN
     Indication: BLOOD PRESSURE MANAGEMENT
     Route: 048
     Dates: start: 2014
  10. CALCIUM CARBONATE. [Concomitant]
     Active Substance: CALCIUM CARBONATE
     Indication: ARTHRITIS
     Route: 048
     Dates: start: 2014
  11. CALCIUM CARBONATE. [Concomitant]
     Active Substance: CALCIUM CARBONATE
     Indication: BONE DISORDER
  12. METHOTREXATE. [Concomitant]
     Active Substance: METHOTREXATE
     Indication: PSORIATIC ARTHROPATHY
     Route: 048
     Dates: start: 2006
  13. METFORMIN [Concomitant]
     Active Substance: METFORMIN HYDROCHLORIDE
     Indication: DIABETES MELLITUS
     Route: 048
  14. OMEPRAZOLE. [Concomitant]
     Active Substance: OMEPRAZOLE
     Indication: GASTRIC DISORDER
  15. SIMVASTATIN. [Concomitant]
     Active Substance: SIMVASTATIN
     Indication: BLOOD CHOLESTEROL ABNORMAL
     Route: 048
  16. THIOCTACID [Concomitant]
     Active Substance: THIOCTIC ACID
     Indication: DIABETES MELLITUS
     Route: 048
     Dates: start: 201506
  17. PREBICTAL [Concomitant]
     Active Substance: PREGABALIN
     Indication: PSORIASIS
     Route: 048
     Dates: start: 2015

REACTIONS (6)
  - Pharyngitis [Recovering/Resolving]
  - Oedematous kidney [Unknown]
  - Blood cholesterol abnormal [Unknown]
  - Swelling [Not Recovered/Not Resolved]
  - Cardiac arrest [Fatal]
  - Diabetic complication [Not Recovered/Not Resolved]

NARRATIVE: CASE EVENT DATE: 20161130
